FAERS Safety Report 20332126 (Version 5)
Quarter: 2022Q1

REPORT INFORMATION
  Report Type: Report from Study
  Country: US (occurrence: US)
  Receive Date: 20220113
  Receipt Date: 20220221
  Transmission Date: 20220423
  Serious: Yes (Other)
  Sender: FDA-Public Use
  Company Number: US-BEH-2022140364

PATIENT
  Age: 56 Year
  Sex: Male
  Weight: 126.98 kg

DRUGS (2)
  1. HIZENTRA [Suspect]
     Active Substance: HUMAN IMMUNOGLOBULIN G
     Indication: Chronic inflammatory demyelinating polyradiculoneuropathy
     Dosage: 26 GRAM, QW
     Route: 058
     Dates: start: 20211230
  2. HIZENTRA [Suspect]
     Active Substance: HUMAN IMMUNOGLOBULIN G
     Dosage: 26 GRAM, QW
     Route: 058
     Dates: start: 20211230

REACTIONS (13)
  - Headache [Recovered/Resolved]
  - Nasopharyngitis [Unknown]
  - No adverse event [Unknown]
  - Device infusion issue [Unknown]
  - Drug ineffective [Unknown]
  - Weight increased [Unknown]
  - No adverse event [Unknown]
  - Device infusion issue [Unknown]
  - Cough [Not Recovered/Not Resolved]
  - Lower respiratory tract infection [Not Recovered/Not Resolved]
  - Infusion site irritation [Unknown]
  - Infusion site pruritus [Unknown]
  - Infusion site rash [Unknown]

NARRATIVE: CASE EVENT DATE: 20211201
